FAERS Safety Report 9025993 (Version 1)
Quarter: 2012Q4

REPORT INFORMATION
  Report Type: Spontaneous
  Country: US (occurrence: None)
  Receive Date: 20121217
  Receipt Date: 20121217
  Transmission Date: 20130627
  Serious: Yes (Other)
  Sender: FDA-Public Use
  Company Number: None

PATIENT
  Age: 35 Year
  Sex: Female
  Weight: 117.94 kg

DRUGS (1)
  1. FONDAPARINUX SODIUM [Suspect]
     Indication: DVT PROPHYLAXIS
     Dosage: 5mg; Once/ day; 057
     Dates: start: 20120515, end: 20120517

REACTIONS (5)
  - Nausea [None]
  - Vomiting [None]
  - Constipation [None]
  - Post procedural oedema [None]
  - Anastomotic complication [None]
